FAERS Safety Report 7572844-9 (Version None)
Quarter: 2011Q2

REPORT INFORMATION
  Report Type: 
  Country: None (occurrence: None)
  Receive Date: 20110627
  Receipt Date: 20110613
  Transmission Date: 20111010
  Serious: Yes (Other)
  Sender: FDA-Public Use
  Company Number: US-CELGENEUS-163-21880-11042777

PATIENT
  Sex: Female
  Weight: 76.272 kg

DRUGS (2)
  1. REVLIMID [Suspect]
     Indication: MULTIPLE MYELOMA
     Dosage: 25 MILLIGRAM
     Route: 048
     Dates: start: 20110401, end: 20110401
  2. VELCADE [Concomitant]
     Route: 051

REACTIONS (2)
  - AORTIC ANEURYSM RUPTURE [None]
  - HYPERSENSITIVITY [None]
